FAERS Safety Report 6313126-2 (Version None)
Quarter: 2009Q3

REPORT INFORMATION
  Report Type: 
  Country: None (occurrence: None)
  Receive Date: 20090818
  Receipt Date: 20090727
  Transmission Date: 20100115
  Serious: Yes (Other)
  Sender: FDA-Public Use
  Company Number: BR-PFIZER INC-2009246376

PATIENT
  Age: 65 Year

DRUGS (7)
  1. FRONTAL XR [Suspect]
     Indication: ANXIETY
     Dosage: 1 MG, 1X/DAY
     Route: 048
     Dates: start: 20050101
  2. FRONTAL XR [Suspect]
     Indication: SLEEP DISORDER
     Dosage: 2 MG, 1X/DAY
     Route: 048
     Dates: start: 20090701
  3. LEXOTAN [Suspect]
     Dosage: UNK
     Dates: start: 20070101
  4. MIRTAZAPINE [Suspect]
     Dosage: UNK
     Dates: start: 20070101
  5. FLUOXETINE [Suspect]
     Dosage: UNK
     Dates: start: 20070101
  6. PAROXETINE [Suspect]
     Dosage: UNK
     Dates: start: 20090701
  7. LORAZEPAM [Concomitant]
     Dosage: UNK
     Dates: start: 20010101

REACTIONS (14)
  - AMNESIA [None]
  - BLEPHAROSPASM [None]
  - COGNITIVE DISORDER [None]
  - COORDINATION ABNORMAL [None]
  - DECREASED APPETITE [None]
  - DIZZINESS [None]
  - DRY MOUTH [None]
  - FALL [None]
  - HEAD INJURY [None]
  - NAUSEA [None]
  - PALPITATIONS [None]
  - TACHYCARDIA [None]
  - VOMITING [None]
  - WEIGHT DECREASED [None]
